FAERS Safety Report 8568157-9 (Version None)
Quarter: 2012Q3

REPORT INFORMATION
  Report Type: 
  Country: None (occurrence: None)
  Receive Date: 20120803
  Receipt Date: 20111122
  Transmission Date: 20120928
  Serious: No
  Sender: FDA-Public Use
  Company Number: US-ABBOTT-11P-163-0877229-00

PATIENT
  Sex: Female
  Weight: 55.842 kg

DRUGS (4)
  1. RED YEAST RICE [Concomitant]
     Indication: BLOOD CHOLESTEROL INCREASED
  2. MULTIPLE EYE DROPS [Concomitant]
     Indication: GLAUCOMA
  3. CHOLEST OFF [Concomitant]
     Indication: BLOOD CHOLESTEROL INCREASED
  4. NIASPAN [Suspect]
     Indication: BLOOD CHOLESTEROL INCREASED
     Dates: start: 20111119

REACTIONS (1)
  - FLUSHING [None]
